FAERS Safety Report 7746775-5 (Version None)
Quarter: 2011Q3

REPORT INFORMATION
  Report Type: 
  Country: None (occurrence: None)
  Receive Date: 20110913
  Receipt Date: 20110908
  Transmission Date: 20111222
  Serious: Yes (Life-Threatening, Hospitalization)
  Sender: FDA-Public Use
  Company Number: US-ASTRAZENECA-2011SE27785

PATIENT
  Age: 70 Year
  Sex: Male

DRUGS (1)
  1. CRESTOR [Suspect]
     Route: 048

REACTIONS (4)
  - PNEUMONIA [None]
  - BIPOLAR DISORDER [None]
  - RESUSCITATION [None]
  - DEMENTIA ALZHEIMER'S TYPE [None]
